FAERS Safety Report 9162446 (Version 1)
Quarter: 2013Q1

REPORT INFORMATION
  Report Type: Report from Study
  Country: DE (occurrence: DE)
  Receive Date: 20130314
  Receipt Date: 20130314
  Transmission Date: 20140127
  Serious: Yes (Life-Threatening)
  Sender: FDA-Public Use
  Company Number: DE-BAYER-2013-011701

PATIENT
  Age: 38 Year
  Sex: Male

DRUGS (1)
  1. EXTAVIA [Suspect]
     Indication: MULTIPLE SCLEROSIS
     Dosage: 250 MCG/ML, QOD
     Route: 058
     Dates: start: 200609, end: 20130117

REACTIONS (7)
  - Cardiac failure [Not Recovered/Not Resolved]
  - Cardiomyopathy [Not Recovered/Not Resolved]
  - Hypertrophic cardiomyopathy [Not Recovered/Not Resolved]
  - Atrial fibrillation [Not Recovered/Not Resolved]
  - Tachycardia [Not Recovered/Not Resolved]
  - Palpitations [Not Recovered/Not Resolved]
  - Dizziness [Not Recovered/Not Resolved]
